FAERS Safety Report 11342750 (Version 5)
Quarter: 2016Q3

REPORT INFORMATION
  Report Type: Spontaneous
  Country: US (occurrence: US)
  Receive Date: 20150805
  Receipt Date: 20160906
  Transmission Date: 20161109
  Serious: Yes (Hospitalization, Disabling)
  Sender: FDA-Public Use
  Company Number: US-PFIZER INC-2015155943

PATIENT
  Age: 58 Year
  Sex: Male

DRUGS (21)
  1. LISINOPRIL. [Concomitant]
     Active Substance: LISINOPRIL
     Dosage: 20 MG, DAILY
     Route: 048
  2. ASPIRIN 81 [Concomitant]
     Active Substance: ASPIRIN
     Dosage: 81 MG, DAILY
     Route: 048
  3. LISINOPRIL. [Concomitant]
     Active Substance: LISINOPRIL
     Dosage: 5 MG, DAILY
     Route: 048
  4. DESITIN [Concomitant]
     Active Substance: ZINC OXIDE
     Dosage: UNK, 3X/DAY (ON HIS BACK)
  5. LYRICA [Suspect]
     Active Substance: PREGABALIN
     Indication: MONONEURITIS
     Dosage: 300 MG, 2X/DAY
     Route: 048
  6. METFORMIN [Concomitant]
     Active Substance: METFORMIN HYDROCHLORIDE
     Dosage: 1000 MG, DAILY (TWICE DAILY WITH FOOD)
  7. METFORMIN [Concomitant]
     Active Substance: METFORMIN HYDROCHLORIDE
     Dosage: 1 G, DAILY
     Route: 048
  8. DESIPRAMINE [Concomitant]
     Active Substance: DESIPRAMINE
     Dosage: 50 MG, 1/2 TABLET EVERYDAY, INCREASING BY 1/2 TABLET EACH WEEK UNTIL TAKING 2 TABLETS EVERY DAY
     Route: 048
  9. XARELTO [Concomitant]
     Active Substance: RIVAROXABAN
     Dosage: 20 MG, DAILY (EVERY DAY WITH THE EVENING MEAL)
     Route: 048
  10. CARVEDILOL. [Concomitant]
     Active Substance: CARVEDILOL
     Dosage: 3.125 MG, 2X/DAY
     Route: 048
  11. LYRICA [Suspect]
     Active Substance: PREGABALIN
     Indication: DIABETIC NEUROPATHY
  12. LOVENOX [Concomitant]
     Active Substance: ENOXAPARIN SODIUM
     Dosage: 1 MG/KG, 2X/DAY (150 MG/ML INJECT (1MG/KG) BY SUBCUTANEOUS ROUTE EVERY 12 HOURS)
     Route: 058
  13. LOVENOX [Concomitant]
     Active Substance: ENOXAPARIN SODIUM
     Dosage: 150 MG, 2X/DAY
     Route: 058
  14. HYDROCHLOROTHIAZIDE. [Concomitant]
     Active Substance: HYDROCHLOROTHIAZIDE
     Dosage: 25 MG, DAILY
     Route: 048
  15. METFORMIN [Concomitant]
     Active Substance: METFORMIN HYDROCHLORIDE
     Dosage: 1000 MG, 2X/DAY (TAKE ONE TABLET BY MOUTH TWICE A DAY WITH MORNING AND EVENING MEALS)
     Route: 048
  16. LISINOPRIL. [Concomitant]
     Active Substance: LISINOPRIL
     Dosage: 20 MG, 1X/DAY
     Route: 048
  17. ATORVASTATIN [Concomitant]
     Active Substance: ATORVASTATIN
     Dosage: 40 MG, DAILY
     Route: 048
  18. ATORVASTATIN [Concomitant]
     Active Substance: ATORVASTATIN
     Dosage: 80 MG, 1X/DAY (BEDTIME)
     Route: 048
  19. GABAPENTIN. [Concomitant]
     Active Substance: GABAPENTIN
     Dosage: 300 MG, 3X/DAY (TAKE 1 TABLET BY ORAL ROUTE 3 TIMES EVERY DAY)
     Route: 048
  20. PERCOCET [Concomitant]
     Active Substance: ACETAMINOPHEN\OXYCODONE HYDROCHLORIDE
     Indication: PAIN
     Dosage: 1 DF, AS NEEDED(OXYCODONE HYDROCHLORIDE-5MG, PARACETAMOL-325MG)(EVERY 6 AS NEEDED)
     Route: 048
  21. LANTUS [Concomitant]
     Active Substance: INSULIN GLARGINE
     Dosage: 25 IU, DAILY
     Route: 058

REACTIONS (6)
  - Pulmonary embolism [Unknown]
  - Intestinal ischaemia [Recovered/Resolved with Sequelae]
  - Dyspnoea [Unknown]
  - Pain [Unknown]
  - Left ventricular failure [Recovered/Resolved with Sequelae]
  - Portal vein thrombosis [Recovered/Resolved]

NARRATIVE: CASE EVENT DATE: 20151116
